FAERS Safety Report 20764587 (Version 2)
Quarter: 2023Q2

REPORT INFORMATION
  Report Type: Spontaneous
  Country: US (occurrence: None)
  Receive Date: 20220428
  Receipt Date: 20230404
  Transmission Date: 20230722
  Serious: Yes (Other)
  Sender: FDA-Public Use
  Company Number: 2022A158269

PATIENT
  Sex: Male
  Weight: 77.1 kg

DRUGS (3)
  1. FASENRA [Suspect]
     Active Substance: BENRALIZUMAB
     Indication: Asthma
     Route: 058
     Dates: end: 2020
  2. FASENRA [Suspect]
     Active Substance: BENRALIZUMAB
     Indication: Asthma
     Route: 058
  3. HIZENTRA [Concomitant]
     Active Substance: HUMAN IMMUNOGLOBULIN G

REACTIONS (27)
  - Adrenocortical insufficiency acute [Not Recovered/Not Resolved]
  - Renal failure [Unknown]
  - Terminal state [Unknown]
  - Poisoning [Unknown]
  - Apnoea [Unknown]
  - Immunodeficiency [Not Recovered/Not Resolved]
  - Primary adrenal insufficiency [Not Recovered/Not Resolved]
  - Blood immunoglobulin G decreased [Not Recovered/Not Resolved]
  - Blood immunoglobulin M abnormal [Not Recovered/Not Resolved]
  - Addison^s disease [Not Recovered/Not Resolved]
  - Presyncope [Not Recovered/Not Resolved]
  - Full blood count abnormal [Not Recovered/Not Resolved]
  - Blood creatine phosphokinase increased [Not Recovered/Not Resolved]
  - Haemoglobin increased [Not Recovered/Not Resolved]
  - White blood cell count increased [Not Recovered/Not Resolved]
  - Haematocrit abnormal [Not Recovered/Not Resolved]
  - Granulocytes abnormal [Not Recovered/Not Resolved]
  - Neutrophil count abnormal [Not Recovered/Not Resolved]
  - Basophil count abnormal [Not Recovered/Not Resolved]
  - Feeling abnormal [Unknown]
  - Eye disorder [Unknown]
  - Contusion [Unknown]
  - Back pain [Unknown]
  - Insurance issue [Unknown]
  - Headache [Unknown]
  - Immunoglobulins increased [Unknown]
  - Product prescribing issue [Unknown]
